FAERS Safety Report 20855228 (Version 1)
Quarter: 2022Q2

REPORT INFORMATION
  Report Type: Report from Study
  Country: US (occurrence: US)
  Receive Date: 20220520
  Receipt Date: 20220520
  Transmission Date: 20220721
  Serious: Yes (Life-Threatening, Other)
  Sender: FDA-Public Use
  Company Number: US-NOVARTISPH-NVSC2022US116394

PATIENT
  Age: 47 Year
  Sex: Male
  Weight: 89.36 kg

DRUGS (1)
  1. ENTRESTO [Suspect]
     Active Substance: SACUBITRIL\VALSARTAN
     Indication: Cardiac failure chronic
     Dosage: 100 MG, BID (49/51 MG)
     Route: 048
     Dates: start: 20210405

REACTIONS (5)
  - Ventricular extrasystoles [Not Recovered/Not Resolved]
  - COVID-19 [Unknown]
  - Throat clearing [Not Recovered/Not Resolved]
  - Productive cough [Not Recovered/Not Resolved]
  - Lung disorder [Not Recovered/Not Resolved]

NARRATIVE: CASE EVENT DATE: 20211101
